FAERS Safety Report 8053007-X (Version None)
Quarter: 2011Q4

REPORT INFORMATION
  Report Type: 
  Country: None (occurrence: None)
  Receive Date: 20111212
  Receipt Date: 20110826
  Transmission Date: 20120403
  Serious: Yes (Other)
  Sender: FDA-Public Use
  Company Number: PHHY2011US69779

PATIENT
  Sex: Female

DRUGS (2)
  1. EXTAVIA [Suspect]
     Dosage: 0.3 MG, QOD, SUBCUTANEOUS, 0.125 MG, QOD, SUBCUTANEOUS, 0.5 ML, SUBCUTANEOUS
     Route: 058
     Dates: start: 20110801
  2. EXTAVIA [Suspect]
     Dosage: 0.3 MG, QOD, SUBCUTANEOUS, 0.125 MG, QOD, SUBCUTANEOUS, 0.5 ML, SUBCUTANEOUS
     Route: 058
     Dates: start: 20110616

REACTIONS (4)
  - MULTIPLE SCLEROSIS RELAPSE [None]
  - VOMITING [None]
  - CONTUSION [None]
  - INJECTION SITE REACTION [None]
